FAERS Safety Report 11720386 (Version 2)
Quarter: 2016Q1

REPORT INFORMATION
  Report Type: Spontaneous
  Country: US (occurrence: US)
  Receive Date: 20151110
  Receipt Date: 20160218
  Transmission Date: 20160525
  Serious: No
  Sender: FDA-Public Use
  Company Number: US-APOTEX-2015AP013440

PATIENT
  Sex: Male

DRUGS (4)
  1. FENTANYL TRANSDERMAL SYSTEM [Suspect]
     Active Substance: FENTANYL
     Dosage: UNK
     Route: 062
  2. FENTANYL TRANSDERMAL SYSTEM [Suspect]
     Active Substance: FENTANYL
     Indication: HEADACHE
     Dosage: 1 DF EVERY 72 HOURS
     Route: 062
  3. FENTANYL TRANSDERMAL SYSTEM [Suspect]
     Active Substance: FENTANYL
     Dosage: UNK
     Route: 062
  4. FENTANYL TRANSDERMAL SYSTEM [Suspect]
     Active Substance: FENTANYL
     Dosage: UNK
     Route: 062

REACTIONS (11)
  - Hyperhidrosis [Unknown]
  - Drug withdrawal syndrome [Unknown]
  - Drug effect incomplete [Unknown]
  - Application site pain [Unknown]
  - Erythema [Unknown]
  - Vomiting [Unknown]
  - Product physical issue [Unknown]
  - Scab [Unknown]
  - Blister [Unknown]
  - Chills [Unknown]
  - Product adhesion issue [Unknown]
